FAERS Safety Report 23267160 (Version 2)
Quarter: 2023Q4

REPORT INFORMATION
  Report Type: Spontaneous
  Country: US (occurrence: US)
  Receive Date: 20231206
  Receipt Date: 20231211
  Transmission Date: 20240109
  Serious: Yes (Hospitalization, Other)
  Sender: FDA-Public Use
  Company Number: US-002147023-NVSC2023US256628

PATIENT
  Age: 57 Year
  Sex: Female

DRUGS (12)
  1. CLOFAZIMINE [Suspect]
     Active Substance: CLOFAZIMINE
     Indication: Mycobacterium abscessus infection
     Dosage: UNK
     Route: 065
  2. AZITHROMYCIN [Suspect]
     Active Substance: AZITHROMYCIN
     Indication: Product used for unknown indication
     Dosage: UNK
     Route: 065
  3. CLARITHROMYCIN [Suspect]
     Active Substance: CLARITHROMYCIN
     Indication: Product used for unknown indication
     Dosage: UNK
     Route: 065
  4. TIGECYCLINE [Suspect]
     Active Substance: TIGECYCLINE
     Indication: Product used for unknown indication
     Dosage: 50 MG, BID
     Route: 065
  5. TOBRAMYCIN [Suspect]
     Active Substance: TOBRAMYCIN
     Indication: Product used for unknown indication
     Dosage: UNK
  6. AMIKACIN [Suspect]
     Active Substance: AMIKACIN
     Indication: Product used for unknown indication
     Dosage: 590 MG, QD
  7. AMIKACIN [Suspect]
     Active Substance: AMIKACIN
     Dosage: UNK, QD (10-15MG/KG/DAY MWF (ADJUSTED FOR RENAL DOSING))
     Route: 042
  8. CEFOXITIN [Suspect]
     Active Substance: CEFOXITIN SODIUM
     Indication: Product used for unknown indication
     Dosage: 2 G (8 H)
     Route: 042
  9. CEFEPIME [Suspect]
     Active Substance: CEFEPIME HYDROCHLORIDE
     Indication: Product used for unknown indication
     Dosage: UNK
     Route: 065
  10. KANAMYCIN [Suspect]
     Active Substance: KANAMYCIN A SULFATE
     Indication: Product used for unknown indication
     Dosage: UNK
     Route: 065
  11. IMIPENEM [Suspect]
     Active Substance: IMIPENEM
     Indication: Product used for unknown indication
     Dosage: UNK
     Route: 065
  12. LINEZOLID [Suspect]
     Active Substance: LINEZOLID
     Indication: Product used for unknown indication
     Dosage: UNK
     Route: 065

REACTIONS (6)
  - Pulmonary mass [Unknown]
  - Abscess [Unknown]
  - Aspergillus infection [Unknown]
  - Organising pneumonia [Unknown]
  - Pathogen resistance [Unknown]
  - Drug resistance [Unknown]

NARRATIVE: CASE EVENT DATE: 20221214
